FAERS Safety Report 9479588 (Version 3)
Quarter: 2013Q4

REPORT INFORMATION
  Report Type: Spontaneous
  Country: SE (occurrence: SE)
  Receive Date: 20130827
  Receipt Date: 20131115
  Transmission Date: 20140711
  Serious: Yes (Other)
  Sender: FDA-Public Use
  Company Number: PHHY2013SE091965

PATIENT
  Sex: Male

DRUGS (4)
  1. GILENYA [Suspect]
     Indication: MULTIPLE SCLEROSIS
     Route: 048
     Dates: start: 20130110, end: 20130823
  2. ERGENYL [Concomitant]
     Dosage: 2000 MG, QD
  3. LYRICA [Concomitant]
     Dosage: 225 MG, QD
  4. OLANZAPINE [Concomitant]
     Dosage: 5 MG, UNK
     Dates: start: 201203

REACTIONS (5)
  - Granulocytopenia [Unknown]
  - Neutrophil count decreased [Recovering/Resolving]
  - Bone marrow myelogram abnormal [Unknown]
  - Thrombocytopenia [Unknown]
  - Lymphocyte count decreased [Recovering/Resolving]
